FAERS Safety Report 8523364-6 (Version None)
Quarter: 2012Q3

REPORT INFORMATION
  Report Type: 
  Country: None (occurrence: None)
  Receive Date: 20120709
  Receipt Date: 20120607
  Transmission Date: 20120928
  Serious: Yes (Other)
  Sender: FDA-Public Use
  Company Number: 2012MA008070

PATIENT
  Sex: Male
  Weight: 3.45 kg

DRUGS (2)
  1. CITALOPRAM HYDROBROMIDE [Suspect]
     Indication: PRODUCT USED FOR UNKNOWN INDICATION
     Dosage: TRANSPLACENTAL
     Route: 064
     Dates: start: 20110201, end: 20110415
  2. ZOPICLONE (ZOPICLONE) [Suspect]
     Indication: PRODUCT USED FOR UNKNOWN INDICATION
     Dosage: 3.75 MG, QD, TRANSPLACENTAL
     Route: 064
     Dates: start: 20101222, end: 20110415

REACTIONS (4)
  - GASTROINTESTINAL DISORDER [None]
  - MATERNAL DRUGS AFFECTING FOETUS [None]
  - INTESTINAL DILATATION [None]
  - CYSTIC FIBROSIS [None]
